FAERS Safety Report 9027097 (Version 4)
Quarter: 2013Q4

REPORT INFORMATION
  Report Type: Spontaneous
  Country: FR (occurrence: FR)
  Receive Date: 20130123
  Receipt Date: 20131030
  Transmission Date: 20140711
  Serious: Yes (Other)
  Sender: FDA-Public Use
  Company Number: FR-BAUSCH-BL-2013-000182

PATIENT
  Age: 71 Year
  Sex: Female

DRUGS (8)
  1. CARTEOL 1% COLLYRE [Suspect]
     Indication: PRODUCT USED FOR UNKNOWN INDICATION
     Route: 047
  2. KIVEXA [Suspect]
     Indication: HIV INFECTION
     Route: 048
  3. ALDACTONE [Suspect]
     Indication: HYPERTENSION
     Route: 048
  4. LUCENTIS 10 MG/ML, SOLUTION INJECTABLE [Suspect]
     Indication: AGE-RELATED MACULAR DEGENERATION
     Route: 031
  5. SUSTIVA [Suspect]
     Indication: HIV INFECTION
     Route: 048
  6. TRAVATAN [Suspect]
     Indication: PRODUCT USED FOR UNKNOWN INDICATION
     Route: 047
  7. MONO-TILDIEM [Suspect]
     Indication: PRODUCT USED FOR UNKNOWN INDICATION
     Route: 048
  8. CRESTOR 5 MG [Suspect]
     Indication: PRODUCT USED FOR UNKNOWN INDICATION
     Route: 048

REACTIONS (1)
  - Hypertrophic cardiomyopathy [Not Recovered/Not Resolved]
